FAERS Safety Report 15578272 (Version 1)
Quarter: 2018Q4

REPORT INFORMATION
  Report Type: Spontaneous
  Country: US (occurrence: US)
  Receive Date: 20181102
  Receipt Date: 20181102
  Transmission Date: 20190205
  Serious: No
  Sender: FDA-Public Use
  Company Number: US-ASTRAZENECA-2018SF29771

PATIENT
  Age: 29860 Day
  Sex: Female
  Weight: 61.2 kg

DRUGS (5)
  1. ELIQUIS [Concomitant]
     Active Substance: APIXABAN
     Indication: THROMBOSIS
     Route: 048
     Dates: start: 20180927
  2. TAGRISSO [Suspect]
     Active Substance: OSIMERTINIB
     Indication: LUNG CARCINOMA CELL TYPE UNSPECIFIED STAGE IV
     Route: 048
     Dates: start: 20180725, end: 20180806
  3. LIOTHYRONINE [Concomitant]
     Active Substance: LIOTHYRONINE
     Indication: THYROID HORMONES DECREASED
     Dosage: DAILY
     Route: 048
  4. TAGRISSO [Suspect]
     Active Substance: OSIMERTINIB
     Indication: LUNG CARCINOMA CELL TYPE UNSPECIFIED STAGE IV
     Route: 048
     Dates: start: 20180919
  5. SYNTHROID [Concomitant]
     Active Substance: LEVOTHYROXINE SODIUM
     Indication: THYROID HORMONES DECREASED
     Dosage: DAILY
     Route: 048

REACTIONS (20)
  - Pyrexia [Unknown]
  - Oral pain [Recovering/Resolving]
  - Erythema [Unknown]
  - Tremor [Unknown]
  - Asthenia [Unknown]
  - Product dose omission [Unknown]
  - Skin discolouration [Unknown]
  - Chills [Unknown]
  - Peripheral swelling [Recovering/Resolving]
  - Muscle spasms [Unknown]
  - Fatigue [Unknown]
  - Stomatitis [Unknown]
  - Rash generalised [Unknown]
  - Diarrhoea [Unknown]
  - Influenza like illness [Unknown]
  - Tongue ulceration [Unknown]
  - Pain [Unknown]
  - Blood disorder [Unknown]
  - Abnormal faeces [Unknown]
  - Somnolence [Not Recovered/Not Resolved]

NARRATIVE: CASE EVENT DATE: 201807
